FAERS Safety Report 7828911-5 (Version None)
Quarter: 2011Q4

REPORT INFORMATION
  Report Type: 
  Country: None (occurrence: None)
  Receive Date: 20111020
  Receipt Date: 20111010
  Transmission Date: 20120403
  Serious: Yes (Hospitalization, Other)
  Sender: FDA-Public Use
  Company Number: US-ABBOTT-11P-163-0846230-00

PATIENT
  Age: 60 Year
  Sex: Female
  Weight: 105.78 kg

DRUGS (22)
  1. TRIAMCINOLONE ACETONIDE [Concomitant]
     Indication: HYPERSENSITIVITY
  2. HYDROCHLOROTHIAZIDE [Concomitant]
     Indication: HYPERTENSION
     Route: 048
     Dates: start: 19960101
  3. GABAPENTIN [Concomitant]
     Indication: ARTHRALGIA
     Route: 048
  4. TRIAMCINOLONE ACETONIDE [Concomitant]
     Indication: PRURITUS
  5. LISINOPRIL [Concomitant]
     Indication: HYPERTENSION
     Route: 048
     Dates: start: 19960101
  6. ADVAIR DISKUS 100/50 [Concomitant]
     Indication: ASTHMA
     Dosage: 250/50 MCG, 1 IN 12 HRS
     Dates: start: 20000101
  7. VENTOLIN HFA [Concomitant]
     Indication: ASTHMA
     Dosage: 108/90 MCG, 1 IN 6 HRS, AS REQUIRED
     Dates: start: 20000101
  8. HUMIRA [Suspect]
     Indication: RHEUMATOID ARTHRITIS
     Route: 058
     Dates: start: 20110411, end: 20110621
  9. METHOTREXATE [Suspect]
     Indication: RHEUMATOID ARTHRITIS
     Route: 048
     Dates: start: 20110411, end: 20110621
  10. ASPIR [Concomitant]
     Indication: RHEUMATOID ARTHRITIS
     Route: 048
  11. LANTUS [Concomitant]
     Indication: DIABETES MELLITUS
     Dosage: 100/45 UNITS, 1 IN 1 D, AT BEDTIME
     Dates: start: 19950101
  12. FLUOXETINE [Concomitant]
     Indication: ANXIETY
     Route: 048
     Dates: start: 19930101
  13. RISPERDAL [Concomitant]
     Indication: ANXIETY
     Route: 048
     Dates: start: 19930101
  14. ACTOS [Concomitant]
     Indication: DIABETES MELLITUS
     Route: 048
     Dates: start: 19950101
  15. METFORMIN HCL [Concomitant]
     Indication: DIABETES MELLITUS
     Route: 048
     Dates: start: 19950101
  16. VICODIN [Concomitant]
     Indication: ARTHRALGIA
     Dosage: 7.5/750 MG, 1 IN 1 D
     Route: 048
  17. SIMVASTATIN [Concomitant]
     Indication: BLOOD CHOLESTEROL
     Route: 048
     Dates: start: 20060101
  18. LORATADINE [Concomitant]
     Indication: HYPERSENSITIVITY
     Route: 048
  19. TYLENOL-500 [Concomitant]
     Indication: BACK PAIN
     Route: 048
     Dates: start: 20110418, end: 20110418
  20. TYLENOL-500 [Concomitant]
     Indication: ADVERSE EVENT
  21. DIPHENHYDRAMINE HCL [Concomitant]
     Indication: PRURITUS
     Dosage: 1 IN 8 HRS, AS REQUIRED
  22. FAMOTIDINE [Concomitant]
     Indication: GASTROOESOPHAGEAL REFLUX DISEASE
     Route: 048

REACTIONS (3)
  - UPPER RESPIRATORY TRACT INFECTION [None]
  - URTICARIA [None]
  - RASH [None]
